FAERS Safety Report 8554847-0 (Version None)
Quarter: 2012Q3

REPORT INFORMATION
  Report Type: 
  Country: None (occurrence: None)
  Receive Date: 20120731
  Receipt Date: 20120727
  Transmission Date: 20120928
  Serious: Yes (Hospitalization)
  Sender: FDA-Public Use
  Company Number: PHHY2012GB064938

PATIENT
  Age: 61 Year
  Sex: Female

DRUGS (12)
  1. INDAPAMIDE [Suspect]
     Route: 048
     Dates: start: 20120702, end: 20120717
  2. RAMIPRIL [Concomitant]
  3. VENTOLIN [Concomitant]
  4. ASPIRIN [Concomitant]
  5. HYPROMELLOSE [Concomitant]
  6. SIMVASTATIN [Concomitant]
  7. ACETAMINOPHEN [Concomitant]
  8. ADALAT CC [Concomitant]
  9. CITALOPRAM HYDROBROMIDE [Concomitant]
  10. METFORMIN HYDROCHLORIDE [Concomitant]
  11. CARBOMER [Concomitant]
  12. QUININE BISULPHATE [Concomitant]

REACTIONS (4)
  - DRUG RASH WITH EOSINOPHILIA AND SYSTEMIC SYMPTOMS [None]
  - ANGIOEDEMA [None]
  - PYREXIA [None]
  - RASH GENERALISED [None]
